FAERS Safety Report 9370562 (Version 1)
Quarter: 2013Q2

REPORT INFORMATION
  Report Type: Spontaneous
  Country: NL (occurrence: NL)
  Receive Date: 20130626
  Receipt Date: 20130626
  Transmission Date: 20140414
  Serious: Yes (Hospitalization)
  Sender: FDA-Public Use
  Company Number: NL-TEVA-413561ISR

PATIENT
  Age: 63 Year
  Sex: Male
  Weight: 90 kg

DRUGS (2)
  1. OXALIPLATINE INFUUS 1MG/MG [Suspect]
     Indication: COLON CANCER
     Dosage: 1 TIME PER THREE WEEKS 130 MG/M2
     Route: 042
     Dates: start: 20130523, end: 20130524
  2. CAPECITABINE I.V. [Concomitant]
     Dosage: EXTRA INFO: 2 DD 1000 MG/M2
     Route: 042
     Dates: start: 20130523

REACTIONS (1)
  - Epilepsy [Recovered/Resolved]
